FAERS Safety Report 8813727 (Version 2)
Quarter: 2013Q1

REPORT INFORMATION
  Report Type: Spontaneous
  Country: US (occurrence: US)
  Receive Date: 20120928
  Receipt Date: 20130111
  Transmission Date: 20140127
  Serious: No
  Sender: FDA-Public Use
  Company Number: US-009507513-1209USA010425

PATIENT
  Sex: Female

DRUGS (1)
  1. ASMANEX TWISTHALER [Suspect]
     Dosage: UNK
     Route: 055

REACTIONS (2)
  - Dysgeusia [Unknown]
  - Product quality issue [Unknown]
